FAERS Safety Report 21110400 (Version 2)
Quarter: 2022Q3

REPORT INFORMATION
  Report Type: Report from Study
  Country: CN (occurrence: CN)
  Receive Date: 20220721
  Receipt Date: 20220728
  Transmission Date: 20221027
  Serious: Yes (Death)
  Sender: FDA-Public Use
  Company Number: CN-BoehringerIngelheim-2022-BI-182159

PATIENT
  Age: 50 Year
  Sex: Male
  Weight: 80 kg

DRUGS (2)
  1. TENECTEPLASE [Suspect]
     Active Substance: TENECTEPLASE
     Indication: Cerebral infarction
     Route: 042
     Dates: start: 20220715, end: 20220715
  2. TIROFIBAN HYDROCHLORIDE [Suspect]
     Active Substance: TIROFIBAN HYDROCHLORIDE
     Indication: Cerebral infarction
     Dosage: ROUTE: INFUSION
     Route: 065
     Dates: start: 20220715, end: 20220715

REACTIONS (3)
  - Cerebral haemorrhage [Fatal]
  - Brain herniation [Fatal]
  - Subarachnoid haemorrhage [Fatal]

NARRATIVE: CASE EVENT DATE: 20220715
